FAERS Safety Report 17187578 (Version 2)
Quarter: 2020Q1

REPORT INFORMATION
  Report Type: Report from Study
  Country: US (occurrence: US)
  Receive Date: 20191220
  Receipt Date: 20200109
  Transmission Date: 20200409
  Serious: No
  Sender: FDA-Public Use
  Company Number: NVSC2019US027662

PATIENT
  Age: 35 Year
  Sex: Male

DRUGS (1)
  1. COSENTYX [Suspect]
     Active Substance: SECUKINUMAB
     Indication: PSORIASIS
     Dosage: 300 MG (2 PENS) AT WEEK 4, THEN 300 MG (2 PENS) EVERY 4 WEEKS THEREAFTER
     Route: 058

REACTIONS (3)
  - Insomnia [Recovered/Resolved]
  - Agitation [Recovered/Resolved]
  - Hypervigilance [Recovered/Resolved]
